FAERS Safety Report 9146261 (Version 2)
Quarter: 2013Q2

REPORT INFORMATION
  Report Type: Spontaneous
  Country: US (occurrence: None)
  Receive Date: 20130213
  Receipt Date: 20130604
  Transmission Date: 20140414
  Serious: Yes (Death, Hospitalization)
  Sender: FDA-Public Use
  Company Number: TIR-01760

PATIENT
  Age: 58 Year
  Sex: Female

DRUGS (8)
  1. LEVOTHYROXINE [Suspect]
     Indication: HYPOTHYROIDISM
  2. PREDNISONE [Suspect]
     Indication: POLYMYALGIA RHEUMATICA
  3. ACYCLOVIR [Suspect]
     Indication: HERPES VIRUS INFECTION
  4. ACYCLOVIR [Suspect]
     Indication: MENINGITIS FUNGAL
  5. FUROSEMIDE [Concomitant]
  6. LISINOPRIL [Concomitant]
  7. INSULIN [Concomitant]
  8. NARCOTICS (UNSPECIFIED) [Concomitant]

REACTIONS (15)
  - Meningitis cryptococcal [None]
  - Septic shock [None]
  - Multi-organ failure [None]
  - Hyperlipidaemia [None]
  - Treatment noncompliance [None]
  - Blood thyroid stimulating hormone increased [None]
  - Urinary tract infection [None]
  - Anti-thyroid antibody positive [None]
  - Anti-thyroid antibody positive [None]
  - Cerebellar infarction [None]
  - Basal ganglia infarction [None]
  - Cerebral infarction [None]
  - Autoimmune thyroiditis [None]
  - Portal hypertension [None]
  - Infection in an immunocompromised host [None]
